FAERS Safety Report 5294600-7 (Version None)
Quarter: 2007Q2

REPORT INFORMATION
  Report Type: 
  Country: None (occurrence: None)
  Receive Date: 20070412
  Receipt Date: 20070405
  Transmission Date: 20071010
  Serious: Yes (Other)
  Sender: FDA-Public Use
  Company Number: US-GLAXOSMITHKLINE-A0596516A

PATIENT
  Age: 50 Year
  Sex: Female

DRUGS (9)
  1. LITHIUM CARBONATE [Suspect]
     Dosage: 300MG THREE TIMES PER DAY
     Route: 048
  2. PLAVIX [Concomitant]
  3. ASPIRIN [Concomitant]
  4. LEVOTHROID [Concomitant]
  5. XANAX [Concomitant]
  6. EXELON [Concomitant]
  7. MEVACOR [Concomitant]
  8. TOPAMAX [Concomitant]
  9. CHLORPHENIRAMINE MALEATE AND PSEUDOEPHEDRINE HCL [Concomitant]

REACTIONS (2)
  - DRUG INEFFECTIVE [None]
  - MANIA [None]
